FAERS Safety Report 9947131 (Version 1)
Quarter: 2014Q1

REPORT INFORMATION
  Report Type: Report from Study
  Country: US (occurrence: US)
  Receive Date: 20140303
  Receipt Date: 20140303
  Transmission Date: 20141002
  Serious: No
  Sender: FDA-Public Use
  Company Number: US-ABBVIE-13P-163-1062265-00

PATIENT
  Age: 23 Year
  Sex: Female

DRUGS (5)
  1. HUMIRA [Suspect]
     Dates: start: 20121214, end: 20130308
  2. HUMIRA [Suspect]
     Dates: start: 20130308
  3. IMURAN [Concomitant]
     Indication: CROHN^S DISEASE
  4. ZOLOFT [Concomitant]
     Indication: CROHN^S DISEASE
  5. XANAX [Concomitant]
     Indication: ANXIETY

REACTIONS (2)
  - Crohn^s disease [Not Recovered/Not Resolved]
  - Arthralgia [Not Recovered/Not Resolved]
